FAERS Safety Report 9674458 (Version 1)
Quarter: 2013Q4

REPORT INFORMATION
  Report Type: Spontaneous
  Country: US (occurrence: US)
  Receive Date: 20131107
  Receipt Date: 20131107
  Transmission Date: 20140711
  Serious: Yes (Death)
  Sender: FDA-Public Use
  Company Number: US-RANBAXY-2013US-74802

PATIENT
  Age: 34 Year
  Sex: Female

DRUGS (3)
  1. ACETAMINOPHEN [Suspect]
     Indication: BACK PAIN
     Dosage: UNK
     Route: 065
  2. TENOFOVIR [Suspect]
     Indication: HIV INFECTION
     Dosage: UNK
     Route: 065
  3. EMTRICITABINE [Suspect]
     Indication: HIV INFECTION
     Dosage: UNK
     Route: 065

REACTIONS (1)
  - Lactic acidosis [Fatal]
